FAERS Safety Report 5361296-5 (Version None)
Quarter: 2007Q2

REPORT INFORMATION
  Report Type: 
  Country: None (occurrence: None)
  Receive Date: 20070614
  Receipt Date: 20070530
  Transmission Date: 20071010
  Serious: Yes (Hospitalization)
  Sender: FDA-Public Use
  Company Number: DSM-2007-00246

PATIENT
  Age: 43 Year
  Sex: Male

DRUGS (8)
  1. OLMETEC(OLMESARTAN MEDOXOMIL) (TABLET) (OLMESARTAN MEDOXOMIL) [Suspect]
     Indication: HYPERTENSION
     Dosage: (1 IN 1 D), ORAL
     Route: 048
     Dates: start: 20070418, end: 20070428
  2. LIPANTHYL (FENOFIBRRATE) (FENOFIBRATE) [Suspect]
     Dosage: ORAL
     Route: 048
     Dates: start: 20070425, end: 20070428
  3. SERETIDE (FLUTICASONE PROPIONATE, SALMETEROL XINAFOATE) (FLUTICASONE P [Concomitant]
  4. INEXIUM (ESOMEPRAZOLE) (ESOMEPRAZOLE) [Concomitant]
  5. DOLIPRANE (PARACETAMOL) (PARACETAMOL) [Concomitant]
  6. CHROMADOSE [Concomitant]
  7. NASACORT (TRIAMCINOLONE ACETONIDE) (TRIAMCINOLONE ACETONIDE) [Concomitant]
  8. BIPERIDYS (DOMPERIDONE) (DOMPERIDONE) [Concomitant]

REACTIONS (9)
  - ANAEMIA [None]
  - BLOOD LACTATE DEHYDROGENASE INCREASED [None]
  - DIZZINESS [None]
  - HAEMOLYTIC ANAEMIA [None]
  - HEADACHE [None]
  - RENAL FAILURE ACUTE [None]
  - THROMBOCYTOPENIA [None]
  - THROMBOTIC MICROANGIOPATHY [None]
  - THROMBOTIC THROMBOCYTOPENIC PURPURA [None]
